FAERS Safety Report 8658347 (Version 3)
Quarter: 2015Q3

REPORT INFORMATION
  Report Type: Report from Study
  Country: CA (occurrence: CA)
  Receive Date: 20120710
  Receipt Date: 20150730
  Transmission Date: 20151125
  Serious: Yes (Other)
  Sender: FDA-Public Use
  Company Number: CA-ROCHE-1084555

PATIENT
  Age: 55 Year
  Sex: Female
  Weight: 56.75 kg

DRUGS (13)
  1. TOLOXIN (CANADA) [Concomitant]
  2. HYDROXYQUINOLINE [Concomitant]
  3. FAMCICLOVIR. [Concomitant]
     Active Substance: FAMCICLOVIR
     Dosage: AS REQUIRED
     Route: 065
  4. CARVEDILOL. [Concomitant]
     Active Substance: CARVEDILOL
  5. CALCITE [Concomitant]
     Active Substance: CALCIUM CARBONATE
  6. DIPHENHYDRAMINE HCL [Concomitant]
     Active Substance: DIPHENHYDRAMINE HYDROCHLORIDE
     Indication: PREMEDICATION
     Route: 048
     Dates: start: 20100622
  7. METHYLPREDNISOLONE. [Concomitant]
     Active Substance: METHYLPREDNISOLONE
     Indication: PREMEDICATION
     Route: 042
     Dates: start: 20100622
  8. MAVIK [Concomitant]
     Active Substance: TRANDOLAPRIL
  9. ACETAMINOPHEN. [Concomitant]
     Active Substance: ACETAMINOPHEN
     Indication: PREMEDICATION
     Route: 048
     Dates: start: 20100622
  10. RITUXAN [Suspect]
     Active Substance: RITUXIMAB
     Indication: RHEUMATOID ARTHRITIS
     Route: 042
     Dates: start: 20100622
  11. ALDACTONE [Concomitant]
     Active Substance: SPIRONOLACTONE
  12. ALTACE [Concomitant]
     Active Substance: RAMIPRIL
  13. BISOPROLOL [Concomitant]
     Active Substance: BISOPROLOL

REACTIONS (4)
  - Infusion related reaction [Unknown]
  - Erythema [Unknown]
  - Malignant melanoma [Unknown]
  - Heart rate decreased [Unknown]

NARRATIVE: CASE EVENT DATE: 20111208
